FAERS Safety Report 10042443 (Version 2)
Quarter: 2014Q1

REPORT INFORMATION
  Report Type: Report from Study
  Country: CA (occurrence: CA)
  Receive Date: 20140327
  Receipt Date: 20140327
  Transmission Date: 20141002
  Serious: Yes (Hospitalization)
  Sender: FDA-Public Use
  Company Number: CA-UCBSA-114639

PATIENT
  Age: 35 Year
  Sex: Female
  Weight: 44 kg

DRUGS (5)
  1. CIMZIA [Suspect]
     Indication: RHEUMATOID ARTHRITIS
     Dosage: 400 MG EVERY 2 WEEKS X3
     Route: 058
     Dates: start: 20140223, end: 20140308
  2. FOLIC ACID [Concomitant]
     Indication: VITAMIN SUPPLEMENTATION
     Dosage: DAILY
     Route: 048
     Dates: end: 2014
  3. MTX [Concomitant]
     Indication: RHEUMATOID ARTHRITIS
     Dosage: WEEKLY
     Route: 058
     Dates: start: 2010, end: 2014
  4. SULFASALAZINE [Concomitant]
     Indication: RHEUMATOID ARTHRITIS
     Dosage: DAILY
     Route: 048
     Dates: start: 2010, end: 2014
  5. PLAQUENIL [Concomitant]
     Indication: RHEUMATOID ARTHRITIS
     Dosage: DAILY
     Route: 048
     Dates: start: 2010, end: 2014

REACTIONS (8)
  - Abdominal abscess [Not Recovered/Not Resolved]
  - Skin discolouration [Recovered/Resolved]
  - Cyanosis [Unknown]
  - Night sweats [Recovered/Resolved]
  - Menorrhagia [Recovered/Resolved]
  - Chills [Unknown]
  - Tremor [Unknown]
  - Pyrexia [Not Recovered/Not Resolved]
